FAERS Safety Report 5808796-9 (Version None)
Quarter: 2008Q3

REPORT INFORMATION
  Report Type: 
  Country: None (occurrence: None)
  Receive Date: 20080714
  Receipt Date: 20080708
  Transmission Date: 20090109
  Serious: Yes (Other)
  Sender: FDA-Public Use
  Company Number: A0736471A

PATIENT
  Age: 82 Year
  Sex: Female

DRUGS (2)
  1. BUPROPION HYDROCHLORIDE [Suspect]
     Indication: DEPRESSION
     Dosage: 300MG PER DAY
     Route: 048
     Dates: start: 20070701
  2. KLONOPIN [Concomitant]

REACTIONS (6)
  - CRYING [None]
  - DEPRESSION [None]
  - GAIT DISTURBANCE [None]
  - LETHARGY [None]
  - SUICIDAL IDEATION [None]
  - VISION BLURRED [None]
